FAERS Safety Report 6435695-4 (Version None)
Quarter: 2009Q4

REPORT INFORMATION
  Report Type: 
  Country: None (occurrence: None)
  Receive Date: 20091111
  Receipt Date: 20091104
  Transmission Date: 20100525
  Serious: Yes (Hospitalization, Other)
  Sender: FDA-Public Use
  Company Number: PHEH2009US15102

PATIENT
  Sex: Female

DRUGS (9)
  1. EXELON [Suspect]
     Indication: DEMENTIA
     Dosage: 9.5 MG, UNK
  2. LISINOPRIL [Concomitant]
  3. COREG [Concomitant]
  4. ASPIRIN [Concomitant]
  5. CENTRUM [Concomitant]
  6. EVISTA [Concomitant]
  7. ASACOL [Concomitant]
  8. SIMVASTATIN [Concomitant]
  9. CALTRATE + D                       /00944201/ [Concomitant]

REACTIONS (7)
  - ANAEMIA [None]
  - COLITIS [None]
  - CONFUSIONAL STATE [None]
  - EATING DISORDER [None]
  - GASTROINTESTINAL PAIN [None]
  - RENAL DISORDER [None]
  - WEIGHT DECREASED [None]
